FAERS Safety Report 7904648-9 (Version None)
Quarter: 2011Q4

REPORT INFORMATION
  Report Type: 
  Country: None (occurrence: None)
  Receive Date: 20111109
  Receipt Date: 20111028
  Transmission Date: 20120403
  Serious: Yes (Congenital Anomaly)
  Sender: FDA-Public Use
  Company Number: US-GLAXOSMITHKLINE-A0950471A

PATIENT
  Sex: Male

DRUGS (8)
  1. METHYLDOPA [Concomitant]
  2. PAXIL CR [Suspect]
     Indication: PRODUCT USED FOR UNKNOWN INDICATION
     Dosage: 25MG UNKNOWN
     Route: 064
  3. IBUPROFEN [Concomitant]
  4. INSULIN [Concomitant]
  5. PAROXETINE HCL [Suspect]
     Indication: PRODUCT USED FOR UNKNOWN INDICATION
     Route: 064
  6. AVANDIA [Concomitant]
  7. LEVOTHYROXINE SODIUM [Concomitant]
  8. METFORMIN HCL [Concomitant]

REACTIONS (11)
  - TALIPES [None]
  - COARCTATION OF THE AORTA [None]
  - CONGENITAL CYSTIC KIDNEY DISEASE [None]
  - BICUSPID AORTIC VALVE [None]
  - LEFT VENTRICULAR HYPERTROPHY [None]
  - SCOLIOSIS [None]
  - HYPERTENSION [None]
  - ASTHMA [None]
  - LIMB ASYMMETRY [None]
  - FOETAL EXPOSURE DURING PREGNANCY [None]
  - RENAL DYSPLASIA [None]
